FAERS Safety Report 8488188-7 (Version None)
Quarter: 2012Q3

REPORT INFORMATION
  Report Type: 
  Country: None (occurrence: None)
  Receive Date: 20120705
  Receipt Date: 20120621
  Transmission Date: 20120928
  Serious: Yes (Other)
  Sender: FDA-Public Use
  Company Number: US-ASTELLAS-2012US005826

PATIENT
  Sex: Male
  Weight: 86 kg

DRUGS (5)
  1. CEFEPIME [Suspect]
     Indication: FUNGAL INFECTION
     Dosage: UNK
     Route: 065
     Dates: end: 20120503
  2. ETOPOSIDE [Concomitant]
     Indication: ACUTE MYELOID LEUKAEMIA
     Dosage: UNK
     Route: 065
     Dates: start: 20120421
  3. AMBISOME [Suspect]
     Indication: FUNGAL INFECTION
     Dosage: UNK
     Route: 065
     Dates: start: 20120428, end: 20120430
  4. CYTARABINE [Concomitant]
     Indication: ACUTE MYELOID LEUKAEMIA
     Dosage: UNK
     Route: 065
     Dates: start: 20120421
  5. IDARUBICIN HCL [Concomitant]
     Indication: ACUTE MYELOID LEUKAEMIA
     Dosage: UNK
     Route: 065
     Dates: start: 20120421

REACTIONS (10)
  - OEDEMA PERIPHERAL [None]
  - HYPOPHOSPHATAEMIA [None]
  - MUSCLE SPASMS [None]
  - HYPOMAGNESAEMIA [None]
  - PYREXIA [None]
  - PURPURA [None]
  - DEEP VEIN THROMBOSIS [None]
  - HYPOKALAEMIA [None]
  - MUSCULOSKELETAL PAIN [None]
  - HYPONATRAEMIA [None]
